FAERS Safety Report 6582818-2 (Version None)
Quarter: 2010Q1

REPORT INFORMATION
  Report Type: 
  Country: None (occurrence: None)
  Receive Date: 20100216
  Receipt Date: 20100203
  Transmission Date: 20100710
  Serious: Yes (Death)
  Sender: FDA-Public Use
  Company Number: CN-PFIZER INC-2010014142

PATIENT
  Age: 96 Year
  Sex: Male

DRUGS (4)
  1. DIFLUCAN [Suspect]
     Indication: CANDIDIASIS
     Dosage: 200 MG, 1X/DAY
     Route: 048
     Dates: start: 20100103
  2. LEVOFLOXACIN [Concomitant]
     Dosage: UNK
     Dates: start: 20100103
  3. CEFODIZIME [Concomitant]
  4. PIPERACILLIN AND TAZOBACTAM [Concomitant]
     Dosage: UNK
     Dates: start: 20100103

REACTIONS (1)
  - RESPIRATORY FAILURE [None]
